FAERS Safety Report 9917574 (Version 1)
Quarter: 2014Q1

REPORT INFORMATION
  Report Type: Spontaneous
  Country: DK (occurrence: FR)
  Receive Date: 20140221
  Receipt Date: 20140221
  Transmission Date: 20141002
  Serious: Yes (Hospitalization)
  Sender: FDA-Public Use
  Company Number: FR-FRI-1000054453

PATIENT
  Age: 83 Year
  Sex: Female

DRUGS (4)
  1. ESCITALOPRAM [Suspect]
     Indication: DEPRESSION
     Dosage: 10 MG
     Route: 048
     Dates: start: 20140102
  2. ESCITALOPRAM [Suspect]
     Dosage: OVERDOSE WITH ONE INTAKE OF 140 MG
     Route: 048
     Dates: start: 20140123, end: 20140123
  3. ESCITALOPRAM [Suspect]
     Dates: start: 20140124, end: 20140124
  4. IMOVANE [Concomitant]
     Indication: INSOMNIA
     Dosage: OVERDOSE WITH ONE INTAKE OF 105 MG
     Route: 048
     Dates: start: 20140123

REACTIONS (3)
  - Disinhibition [Recovering/Resolving]
  - Suicide attempt [Recovered/Resolved]
  - Intentional overdose [Recovered/Resolved]
